FAERS Safety Report 21929658 (Version 2)
Quarter: 2023Q1

REPORT INFORMATION
  Report Type: Spontaneous
  Country: US (occurrence: US)
  Receive Date: 20230131
  Receipt Date: 20230317
  Transmission Date: 20230417
  Serious: No
  Sender: FDA-Public Use
  Company Number: US-BRISTOL-MYERS SQUIBB COMPANY-2023-013860

PATIENT
  Age: 66 Year
  Sex: Female
  Weight: 125.6 kg

DRUGS (1)
  1. REVLIMID [Suspect]
     Active Substance: LENALIDOMIDE
     Indication: Plasma cell myeloma
     Dosage: FREQ : 2 WEEKS ON 1 WEEK OFF
     Route: 048
     Dates: start: 202206

REACTIONS (5)
  - White blood cell count decreased [Unknown]
  - Biopsy bone [Unknown]
  - Off label use [Unknown]
  - Fatigue [Unknown]
  - Asthenia [Unknown]

NARRATIVE: CASE EVENT DATE: 20230126
